FAERS Safety Report 9696301 (Version 3)
Quarter: 2013Q4

REPORT INFORMATION
  Report Type: Report from Study
  Country: IN (occurrence: IN)
  Receive Date: 20131119
  Receipt Date: 20131224
  Transmission Date: 20140711
  Serious: Yes (Hospitalization)
  Sender: FDA-Public Use
  Company Number: IN-PFIZER INC-2013328845

PATIENT
  Age: 34 Year
  Sex: Female
  Weight: 82 kg

DRUGS (7)
  1. TOFACITINIB CITRATE [Suspect]
     Indication: RHEUMATOID ARTHRITIS
     Dosage: 10 MG, 2X/DAY
     Route: 048
     Dates: start: 20111122, end: 20131114
  2. CALTEN D [Concomitant]
     Indication: MINERAL SUPPLEMENTATION
     Dosage: 500 MG, 1X/DAY
     Route: 048
     Dates: start: 20090525
  3. CALTEN D [Concomitant]
     Indication: VITAMIN SUPPLEMENTATION
  4. VITCOFOL [Concomitant]
     Indication: ANAEMIA
     Dosage: UNK
     Route: 048
     Dates: start: 20120821
  5. FOL 5 [Concomitant]
     Indication: VITAMIN SUPPLEMENTATION
     Dosage: 5 MG, ONCE A WEEK ON FRIDAY
     Route: 048
     Dates: start: 20090523
  6. FOLITRAX [Concomitant]
     Indication: RHEUMATOID ARTHRITIS
     Dosage: 7.5 MG, ONCE A WEEK ON SATURDAY
     Route: 048
     Dates: start: 20090525
  7. NORGESTREL [Concomitant]
     Indication: CONTRACEPTION
     Dosage: 0.03 MG, 1X/DAY
     Route: 048
     Dates: start: 20091010

REACTIONS (1)
  - Gastroenteritis [Recovered/Resolved]
